FAERS Safety Report 6410223-8 (Version None)
Quarter: 2009Q4

REPORT INFORMATION
  Report Type: 
  Country: None (occurrence: None)
  Receive Date: 20091022
  Receipt Date: 20091015
  Transmission Date: 20100525
  Serious: Yes (Hospitalization, Other)
  Sender: FDA-Public Use
  Company Number: PHHY2009CA18230

PATIENT
  Sex: Male

DRUGS (2)
  1. SANDOSTATIN LAR [Suspect]
     Indication: HEPATIC NEOPLASM
     Dosage: 30 MG, EVERY 4 WEEKS
     Route: 030
     Dates: start: 20081215
  2. ENTROPHEN [Concomitant]

REACTIONS (9)
  - ABDOMINAL PAIN UPPER [None]
  - BACK PAIN [None]
  - BLOOD PRESSURE SYSTOLIC INCREASED [None]
  - DEPRESSION [None]
  - HAEMORRHAGE [None]
  - HAEMORRHAGE SUBCUTANEOUS [None]
  - INCISION SITE COMPLICATION [None]
  - MALIGNANT NEOPLASM PROGRESSION [None]
  - PAIN [None]
